FAERS Safety Report 7546112-5 (Version None)
Quarter: 2011Q2

REPORT INFORMATION
  Report Type: 
  Country: None (occurrence: None)
  Receive Date: 20110614
  Receipt Date: 20040206
  Transmission Date: 20111010
  Serious: Yes (Hospitalization)
  Sender: FDA-Public Use
  Company Number: PHFR2003IE04440

PATIENT
  Sex: Female

DRUGS (2)
  1. CLOZAPINE [Suspect]
     Indication: SCHIZOPHRENIA
     Dosage: 600 MG/DAY
     Route: 048
     Dates: start: 19940330, end: 20031101
  2. VALPROIC ACID [Concomitant]
     Dosage: 400 MG/DAY

REACTIONS (4)
  - CORONARY ARTERY DISEASE [None]
  - DYSPNOEA [None]
  - CHEST PAIN [None]
  - BLOOD CHOLESTEROL INCREASED [None]
